FAERS Safety Report 16627883 (Version 1)
Quarter: 2019Q3

REPORT INFORMATION
  Report Type: Spontaneous
  Country: US (occurrence: US)
  Receive Date: 20190724
  Receipt Date: 20190724
  Transmission Date: 20191004
  Serious: No
  Sender: FDA-Public Use
  Company Number: US-009507513-1907USA013362

PATIENT
  Age: 19 Year
  Sex: Female
  Weight: 66.67 kg

DRUGS (1)
  1. NEXPLANON [Suspect]
     Active Substance: ETONOGESTREL
     Dosage: 1 IMPLANT
     Route: 059
     Dates: start: 201607, end: 20190718

REACTIONS (2)
  - Device breakage [Recovered/Resolved]
  - Complication of device removal [Recovered/Resolved]

NARRATIVE: CASE EVENT DATE: 20190718
